FAERS Safety Report 5629620-3 (Version None)
Quarter: 2008Q1

REPORT INFORMATION
  Report Type: 
  Country: None (occurrence: None)
  Receive Date: 20080218
  Receipt Date: 20080208
  Transmission Date: 20080703
  Serious: Yes (Congenital Anomaly)
  Sender: FDA-Public Use
  Company Number: US-ROCHE-545724

PATIENT
  Sex: Female
  Weight: 2 kg

DRUGS (8)
  1. INVIRASE [Suspect]
     Indication: DRUG USE FOR UNKNOWN INDICATION
     Dosage: ^2000^
     Route: 064
     Dates: start: 20070917
  2. NORVIR [Suspect]
     Indication: DRUG USE FOR UNKNOWN INDICATION
     Dosage: ^200^ IS THE REPORTED DAILY DOSE
     Route: 064
     Dates: start: 20070917
  3. VIRACEPT [Suspect]
     Indication: DRUG USE FOR UNKNOWN INDICATION
     Dosage: ^2500^ IS THE REPORTED DAILY DOSE
     Route: 064
     Dates: start: 20070828, end: 20070917
  4. COMBIVIR [Suspect]
     Indication: DRUG USE FOR UNKNOWN INDICATION
     Dosage: ^900^ IS REPORTED TODAY DAILY DOSE
     Route: 064
     Dates: start: 20070428
  5. SUPPLEMENT NOS [Concomitant]
     Dosage: REPORTED AS FOLATE SUPPLEMENT, TAKEN DURING THE FIRST AND SECOND TRIMESTERS.
  6. METRONIDAZOLE HCL [Concomitant]
     Dosage: TOOK DURING HER THIRD TRIMESTER.
  7. ZANTAC [Concomitant]
     Dosage: TAKEN DURING HER SECOND TRIMESTER.
  8. PRENATAL [Concomitant]
     Dosage: REPORTED AS PRENATAL TABS TAKEN DURING HER SECOND AND THIRD TRIMESTERS.

REACTIONS (3)
  - ATRIOVENTRICULAR SEPTAL DEFECT [None]
  - PATENT DUCTUS ARTERIOSUS [None]
  - TRISOMY 21 [None]
